FAERS Safety Report 16071784 (Version 2)
Quarter: 2019Q4

REPORT INFORMATION
  Report Type: Spontaneous
  Country: US (occurrence: US)
  Receive Date: 20190314
  Receipt Date: 20191202
  Transmission Date: 20200122
  Serious: No
  Sender: FDA-Public Use
  Company Number: US-PFIZER INC-2019107005

PATIENT
  Sex: Male
  Weight: 52.62 kg

DRUGS (1)
  1. GENOTROPIN [Suspect]
     Active Substance: SOMATROPIN
     Indication: GROWTH HORMONE DEFICIENCY
     Dosage: UNK (DOSAGE VARIED TAKEN ONCE A DAY)
     Dates: start: 1996, end: 2004

REACTIONS (1)
  - Hair colour changes [Not Recovered/Not Resolved]
